FAERS Safety Report 18544015 (Version 1)
Quarter: 2020Q4

REPORT INFORMATION
  Report Type: Spontaneous
  Country: GB (occurrence: GB)
  Receive Date: 20201125
  Receipt Date: 20201125
  Transmission Date: 20210114
  Serious: Yes (Hospitalization, Other)
  Sender: FDA-Public Use
  Company Number: GB-AUROBINDO-AUR-APL-2012-04435

PATIENT
  Age: 33 Year
  Sex: Male

DRUGS (1)
  1. PARACETAMOL [Suspect]
     Active Substance: ACETAMINOPHEN
     Indication: PRODUCT USED FOR UNKNOWN INDICATION
     Dosage: UNK
     Route: 065

REACTIONS (9)
  - Mycotic endophthalmitis [Recovered/Resolved]
  - Overdose [Recovered/Resolved]
  - Haemoptysis [Recovered/Resolved]
  - Acute hepatic failure [Recovered/Resolved]
  - Chorioretinitis [Recovered/Resolved]
  - Aspergillus infection [Recovered/Resolved]
  - Orbital oedema [Recovered/Resolved]
  - Vascular pseudoaneurysm [Recovered/Resolved]
  - Liver transplant [Recovered/Resolved]
